FAERS Safety Report 21680465 (Version 1)
Quarter: 2022Q4

REPORT INFORMATION
  Report Type: Spontaneous
  Country: US (occurrence: US)
  Receive Date: 20221205
  Receipt Date: 20221205
  Transmission Date: 20230113
  Serious: Yes (Other)
  Sender: FDA-Public Use
  Company Number: US-ORGANON-O2211USA002660

PATIENT
  Age: 47 Year
  Sex: Female
  Weight: 95.7 kg

DRUGS (1)
  1. NEXPLANON [Suspect]
     Active Substance: ETONOGESTREL
     Dosage: 1 IMPLANT IN LEFT ARM, EVERY 3 YEARS
     Route: 059
     Dates: start: 20191127, end: 20221128

REACTIONS (5)
  - Device dislocation [Recovered/Resolved]
  - Weight increased [Unknown]
  - Device issue [Recovered/Resolved]
  - Complication of device removal [Recovered/Resolved]
  - Incorrect product administration duration [Unknown]

NARRATIVE: CASE EVENT DATE: 20221126
